FAERS Safety Report 9458264 (Version 1)
Quarter: 2013Q3

REPORT INFORMATION
  Report Type: Spontaneous
  Country: AU (occurrence: AU)
  Receive Date: 20130814
  Receipt Date: 20130814
  Transmission Date: 20140515
  Serious: Yes (Other)
  Sender: FDA-Public Use
  Company Number: AU-PFIZER INC-2013233298

PATIENT
  Age: 51 Year
  Sex: Female
  Weight: 54 kg

DRUGS (8)
  1. HEPARIN SODIUM [Suspect]
     Dosage: 5000 IU, 1X/DAY
     Route: 058
     Dates: start: 19920531, end: 19920602
  2. VANCOMYCIN HCL [Suspect]
     Dosage: 4 G, UNK
     Route: 042
     Dates: start: 19920530, end: 19920601
  3. CLOXACILLIN SODIUM [Suspect]
     Dosage: 8 G, 1X/DAY
     Route: 042
     Dates: start: 19920531, end: 19920601
  4. MAXOLON [Suspect]
     Dosage: 10 MG, AS NEEDED
     Route: 042
     Dates: start: 19920531, end: 19920602
  5. PROLADONE [Suspect]
     Dosage: 15 MG, AS NEEDED
     Route: 054
     Dates: start: 19920530, end: 19920602
  6. STEMETIL [Suspect]
     Dosage: 12.5 MG, AS NEEDED
     Route: 030
     Dates: start: 19920531, end: 19920601
  7. CARDIPRIN 100 [Concomitant]
     Dosage: 100 MG, DAILY
  8. PANADOL [Concomitant]
     Dosage: 8 DF, 1X/DAY
     Dates: start: 19920531

REACTIONS (3)
  - Renal failure acute [Recovered/Resolved]
  - Oliguria [Recovered/Resolved]
  - Drug level increased [Recovered/Resolved]
